FAERS Safety Report 9649012 (Version 2)
Quarter: 2013Q4

REPORT INFORMATION
  Report Type: Spontaneous
  Country: DE (occurrence: DE)
  Receive Date: 20131028
  Receipt Date: 20131126
  Transmission Date: 20140711
  Serious: Yes (Other)
  Sender: FDA-Public Use
  Company Number: DE-ASTELLAS-2013EU009111

PATIENT
  Sex: Male

DRUGS (1)
  1. XTANDI [Suspect]
     Dosage: UNK
     Route: 065
     Dates: start: 20130911

REACTIONS (2)
  - Infection [Unknown]
  - White blood cell count increased [Not Recovered/Not Resolved]
